FAERS Safety Report 6225993-1 (Version None)
Quarter: 2009Q2

REPORT INFORMATION
  Report Type: 
  Country: None (occurrence: None)
  Receive Date: 20090612
  Receipt Date: 20090602
  Transmission Date: 20091009
  Serious: Yes (Death)
  Sender: FDA-Public Use
  Company Number: DE-PFIZER INC-2009221837

PATIENT
  Age: 69 Year

DRUGS (2)
  1. CAMPTOSAR [Suspect]
     Indication: COLON CANCER METASTATIC
     Dosage: 130 MG DAILY
     Route: 042
  2. ERBITUX [Suspect]
     Indication: COLON CANCER METASTATIC
     Dosage: 500 MG DAILY
     Route: 042

REACTIONS (2)
  - FEBRILE NEUTROPENIA [None]
  - RENAL FAILURE ACUTE [None]
